FAERS Safety Report 21668361 (Version 1)
Quarter: 2022Q4

REPORT INFORMATION
  Report Type: Spontaneous
  Country: US (occurrence: US)
  Receive Date: 20221201
  Receipt Date: 20221201
  Transmission Date: 20230113
  Serious: No
  Sender: FDA-Public Use
  Company Number: US-BIOGEN-2022BI01172357

PATIENT
  Sex: Female

DRUGS (10)
  1. VUMERITY [Suspect]
     Active Substance: DIROXIMEL FUMARATE
     Indication: Multiple sclerosis
     Dosage: TAKE 2 CAPSULES (462MG) BY MOUTH TWICE DAILY.
     Route: 050
     Dates: end: 2022
  2. ASPIRIN [Concomitant]
     Active Substance: ASPIRIN
     Route: 050
  3. HYDROCODONE BITARTRATE ER [Concomitant]
     Route: 050
  4. LYRICA [Concomitant]
     Active Substance: PREGABALIN
     Route: 050
  5. AMLODIPINE BESYLATE [Concomitant]
     Active Substance: AMLODIPINE BESYLATE
     Route: 050
  6. BENTYL [Concomitant]
     Active Substance: DICYCLOMINE HYDROCHLORIDE
     Route: 050
  7. MUCINEX [Concomitant]
     Active Substance: GUAIFENESIN
     Route: 050
  8. ADVIL [Concomitant]
     Active Substance: IBUPROFEN
     Route: 050
  9. NYSTATIN [Concomitant]
     Active Substance: NYSTATIN
     Route: 050
  10. FLUTICASONE PROPIONATE [Concomitant]
     Active Substance: FLUTICASONE PROPIONATE
     Route: 050

REACTIONS (2)
  - Amnesia [Unknown]
  - Flushing [Unknown]
